FAERS Safety Report 8168115-2 (Version None)
Quarter: 2012Q1

REPORT INFORMATION
  Report Type: 
  Country: None (occurrence: None)
  Receive Date: 20120227
  Receipt Date: 20120214
  Transmission Date: 20120608
  Serious: Yes (Other)
  Sender: FDA-Public Use
  Company Number: JP-ASTRAZENECA-2012SE12060

PATIENT
  Age: 67 Year
  Sex: Male

DRUGS (2)
  1. MEROPENEM [Suspect]
     Route: 042
     Dates: start: 20120209
  2. AMBISOME [Suspect]
     Dates: start: 20120130

REACTIONS (1)
  - PLATELET COUNT DECREASED [None]
